FAERS Safety Report 8456749-7 (Version None)
Quarter: 2012Q2

REPORT INFORMATION
  Report Type: 
  Country: None (occurrence: None)
  Receive Date: 20120621
  Receipt Date: 20120613
  Transmission Date: 20120825
  Serious: Yes (Disabling, Other)
  Sender: FDA-Public Use
  Company Number: CA-PURDUE-CAN-2012-0003109

PATIENT
  Age: 92 Year
  Sex: Male

DRUGS (1)
  1. BUTRANS [Suspect]
     Indication: PAIN
     Dosage: UNK
     Route: 065

REACTIONS (1)
  - COMA [None]
